FAERS Safety Report 7694199-1 (Version None)
Quarter: 2011Q3

REPORT INFORMATION
  Report Type: 
  Country: None (occurrence: None)
  Receive Date: 20110819
  Receipt Date: 20110805
  Transmission Date: 20111222
  Serious: Yes (Hospitalization)
  Sender: FDA-Public Use
  Company Number: GB-PFIZER INC-2011130763

PATIENT
  Age: 83 Year
  Sex: Male

DRUGS (5)
  1. OMACOR [Concomitant]
  2. ACETYLSALICYLIC ACID [Suspect]
     Indication: CARDIOVASCULAR DISORDER
     Dosage: 75 MG, 1X/DAY
     Route: 048
     Dates: end: 20110530
  3. SIMVASTATIN [Concomitant]
     Route: 065
  4. IBUPROFEN [Suspect]
     Indication: PRODUCT USED FOR UNKNOWN INDICATION
     Dosage: 400 MG, 3X/DAY
     Route: 048
     Dates: end: 20110530
  5. RAMIPRIL [Concomitant]
     Route: 065

REACTIONS (9)
  - HAEMATEMESIS [None]
  - BLOOD UREA INCREASED [None]
  - OESOPHAGITIS ULCERATIVE [None]
  - CONFUSIONAL STATE [None]
  - DUODENITIS [None]
  - GASTROINTESTINAL HAEMORRHAGE [None]
  - PLATELET COUNT DECREASED [None]
  - BLOOD CREATINE INCREASED [None]
  - GASTRITIS [None]
